FAERS Safety Report 19595978 (Version 8)
Quarter: 2022Q3

REPORT INFORMATION
  Report Type: Report from Study
  Country: US (occurrence: US)
  Receive Date: 20210723
  Receipt Date: 20220623
  Transmission Date: 20221027
  Serious: Yes (Other)
  Sender: FDA-Public Use
  Company Number: NVSC2021US146375

PATIENT
  Age: 38 Year
  Sex: Female

DRUGS (2)
  1. KESIMPTA [Suspect]
     Active Substance: OFATUMUMAB
     Indication: Multiple sclerosis
     Dosage: 20 MG, OTHER  (ONCE A WEEK FOR 3 WEEKS WITH A WEEK BREAK ONCE A MONTH THEREAFTER)
     Route: 058
     Dates: start: 20210520
  2. KESIMPTA [Suspect]
     Active Substance: OFATUMUMAB
     Dosage: UNK
     Route: 058
     Dates: start: 20210526

REACTIONS (11)
  - Breast adenoma [Unknown]
  - Breast haemorrhage [Unknown]
  - Kidney infection [Unknown]
  - Balance disorder [Recovering/Resolving]
  - Stress [Recovering/Resolving]
  - Chest pain [Unknown]
  - Paraesthesia [Recovered/Resolved]
  - Sciatica [Unknown]
  - Tremor [Recovered/Resolved]
  - Intervertebral disc protrusion [Unknown]
  - Device malfunction [Unknown]

NARRATIVE: CASE EVENT DATE: 20210619
